FAERS Safety Report 9412774 (Version 1)
Quarter: 2013Q3

REPORT INFORMATION
  Report Type: Report from Study
  Country: US (occurrence: US)
  Receive Date: 20130722
  Receipt Date: 20130722
  Transmission Date: 20140515
  Serious: Yes (Hospitalization)
  Sender: FDA-Public Use
  Company Number: PHEH2013US015346

PATIENT
  Sex: Male

DRUGS (1)
  1. MYFORTIC [Suspect]
     Dosage: 260 MG, 2 BID
     Route: 048

REACTIONS (2)
  - Gastrointestinal tract irritation [Unknown]
  - Gastrointestinal inflammation [Unknown]
